FAERS Safety Report 8442571-4 (Version None)
Quarter: 2012Q2

REPORT INFORMATION
  Report Type: 
  Country: None (occurrence: None)
  Receive Date: 20120615
  Receipt Date: 20110723
  Transmission Date: 20120825
  Serious: No
  Sender: FDA-Public Use
  Company Number: US-FOUGERA-2011FO000164

PATIENT
  Sex: Female

DRUGS (1)
  1. HYDROCORTISONE [Suspect]
     Indication: GENITAL DISORDER FEMALE
     Route: 067
     Dates: start: 20110723, end: 20110723

REACTIONS (2)
  - OFF LABEL USE [None]
  - APPLICATION SITE PAIN [None]
